FAERS Safety Report 6723576-8 (Version None)
Quarter: 2010Q2

REPORT INFORMATION
  Report Type: 
  Country: None (occurrence: None)
  Receive Date: 20100511
  Receipt Date: 20100505
  Transmission Date: 20101027
  Serious: Yes (Other)
  Sender: FDA-Public Use
  Company Number: 2010SP025830

PATIENT
  Sex: Female

DRUGS (1)
  1. DESLORATADINE [Suspect]
     Indication: HYPERSENSITIVITY

REACTIONS (1)
  - GASTROINTESTINAL CARCINOMA [None]
